FAERS Safety Report 5802702-9 (Version None)
Quarter: 2008Q2

REPORT INFORMATION
  Report Type: 
  Country: None (occurrence: None)
  Receive Date: 20080627
  Receipt Date: 20070524
  Transmission Date: 20081010
  Serious: Yes (Other)
  Sender: FDA-Public Use
  Company Number: 2007-02522

PATIENT
  Age: 44 Year
  Sex: Female
  Weight: 57.6 kg

DRUGS (3)
  1. INFED [Suspect]
     Dosage: 975 MG OVER 1 HOUR, INTRAVENOUS; 25 MG TEST DOSE, INTRAVENOUS
     Route: 042
     Dates: start: 20070316, end: 20070316
  2. INFED [Suspect]
     Dosage: 975 MG OVER 1 HOUR, INTRAVENOUS; 25 MG TEST DOSE, INTRAVENOUS
     Route: 042
     Dates: start: 20070316, end: 20070316
  3. LEVOTHYROXINE SODIUM [Concomitant]

REACTIONS (8)
  - ANAPHYLACTIC REACTION [None]
  - COUGH [None]
  - DYSPHAGIA [None]
  - DYSPNOEA [None]
  - NAUSEA [None]
  - PRURITUS [None]
  - THROAT IRRITATION [None]
  - THROAT TIGHTNESS [None]
